FAERS Safety Report 10890221 (Version 1)
Quarter: 2015Q1

REPORT INFORMATION
  Report Type: Spontaneous
  Country: FR (occurrence: FR)
  Receive Date: 20150305
  Receipt Date: 20150305
  Transmission Date: 20150721
  Serious: Yes (Hospitalization)
  Sender: FDA-Public Use
  Company Number: FR-ACTELION-A-CH2015-113517

PATIENT
  Age: 19 Year
  Sex: Male

DRUGS (12)
  1. REVATIO [Suspect]
     Active Substance: SILDENAFIL CITRATE
     Indication: PULMONARY ARTERIAL HYPERTENSION
     Dosage: 20 MG, TID
     Route: 048
     Dates: start: 20131122
  2. MAG 2 [Concomitant]
     Active Substance: MAGNESIUM CHLORIDE
     Dosage: UNK, BID
  3. TRACLEER [Suspect]
     Active Substance: BOSENTAN\BOSENTAN MONOHYDRATE
     Indication: PULMONARY ARTERIAL HYPERTENSION
     Dosage: 62.5 MG, BID
     Route: 048
     Dates: start: 20131122
  4. ANDROTARDYL [Concomitant]
     Active Substance: TESTOSTERONE
     Dosage: 150 MG, Q1MONTH
  5. DACUDOSES [Concomitant]
     Dosage: UNK, OD
  6. ADALAT [Concomitant]
     Active Substance: NIFEDIPINE
     Dosage: 5 MG, TID
  7. SERETIDE [Concomitant]
     Active Substance: FLUTICASONE FUROATE\SALMETEROL XINAFOATE
     Dosage: 250 UNK, BID
  8. TARDYFERON [Concomitant]
     Active Substance: FERROUS SULFATE\FOLIC ACID
     Dosage: 80 UNK, OD
  9. VITAMINE A [Concomitant]
  10. TOCO [Concomitant]
     Active Substance: UNSPECIFIED INGREDIENT
     Dosage: 500 UNK, BID
  11. IMMUNOGLOBULINES HUMAINES CNTS [Concomitant]
  12. CALCIDOSE [Concomitant]
     Active Substance: CALCIUM CARBONATE
     Dosage: UNK, BID

REACTIONS (4)
  - Haemoglobin decreased [Not Recovered/Not Resolved]
  - Transfusion [Unknown]
  - Anaemia [Not Recovered/Not Resolved]
  - Microcytic anaemia [Not Recovered/Not Resolved]

NARRATIVE: CASE EVENT DATE: 20140205
